FAERS Safety Report 4502525-7 (Version None)
Quarter: 2004Q4

REPORT INFORMATION
  Report Type: 
  Country: None (occurrence: None)
  Receive Date: 20041110
  Receipt Date: 20041104
  Transmission Date: 20050328
  Serious: Yes (Hospitalization)
  Sender: FDA-Public Use
  Company Number: FRWYE081401OCT04

PATIENT
  Age: 85 Year
  Sex: Female

DRUGS (4)
  1. EFFEXOR [Suspect]
     Route: 048
  2. OMEPRAZOLE [Suspect]
  3. XANAX [Suspect]
  4. ZYPREXA [Suspect]

REACTIONS (6)
  - ANAEMIA [None]
  - CONFUSIONAL STATE [None]
  - HYPERCAPNIA [None]
  - NERVOUS SYSTEM DISORDER [None]
  - SOMNOLENCE [None]
  - SUPERINFECTION LUNG [None]
